FAERS Safety Report 8419034 (Version 2)
Quarter: 2012Q4

REPORT INFORMATION
  Report Type: 
  Country: US (occurrence: US)
  Receive Date: 20120221
  Receipt Date: 20120912
  Transmission Date: 20130627
  Serious: Yes (Hospitalization, Other)
  Sender: FDA-Public Use
  Company Number: US-BAYER-2012-016719

PATIENT
  Age: 12 Year
  Sex: Female
  Weight: 104.31 kg

DRUGS (14)
  1. YAZ [Suspect]
     Indication: POLYCYSTIC OVARIES
     Dosage: UNK
     Dates: start: 20110208
  2. YAZ [Suspect]
     Indication: HIRSUTISM
     Dosage: UNK
     Dates: start: 20110301
  3. BEYAZ [Suspect]
     Indication: POLYCYSTIC OVARIES
     Dosage: UNK
     Dates: start: 20110127, end: 20110313
  4. BEYAZ [Suspect]
     Indication: HIRSUTISM
  5. PERIACTIN [Concomitant]
     Dosage: 4 mg, HS
     Route: 048
  6. REMERON [Concomitant]
     Dosage: 30 mg, HS
     Route: 048
  7. REMERON [Concomitant]
     Dosage: 15 mg, QD
  8. MUPIROCIN [Concomitant]
     Dosage: 2 %, UNK
     Route: 061
  9. CLINDAMYCIN [Concomitant]
     Indication: ACNE
     Dosage: 1 %, UNK
     Route: 061
  10. LEVOTHYROXINE [Concomitant]
     Indication: HYPOTHYROIDISM
     Dosage: UNK
     Route: 048
     Dates: start: 20110127
  11. BACTROBAN [Concomitant]
     Dosage: UNK
     Dates: start: 20110309
  12. MOTRIN [Concomitant]
     Indication: LIGAMENT SPRAIN
     Dosage: UNK UNK, PRN
     Dates: start: 20110309
  13. CYPROHEPTADINE HYDROCHLORIDE [Concomitant]
  14. LEVOTHYROXINE SODIUM [Concomitant]

REACTIONS (3)
  - Deep vein thrombosis [Recovered/Resolved]
  - Inferior vena caval occlusion [None]
  - Pain in extremity [Recovered/Resolved]
